FAERS Safety Report 6267112-1 (Version None)
Quarter: 2009Q3

REPORT INFORMATION
  Report Type: 
  Country: None (occurrence: None)
  Receive Date: 20090714
  Receipt Date: 20090703
  Transmission Date: 20100115
  Serious: Yes (Hospitalization)
  Sender: FDA-Public Use
  Company Number: US-ABBOTT-09P-163-0572568-00

PATIENT
  Sex: Male
  Weight: 86.26 kg

DRUGS (3)
  1. HUMIRA [Suspect]
     Indication: CROHN'S DISEASE
     Dosage: PT STARTED WITH LOADING DOSE.
     Route: 058
     Dates: start: 20090419
  2. PENTASA [Concomitant]
     Indication: CROHN'S DISEASE
     Dosage: DOSE UNKNOWN
     Route: 048
  3. IMURAN [Concomitant]
     Indication: CROHN'S DISEASE
     Dosage: DOSE UNKNOWN
     Route: 048

REACTIONS (9)
  - ABDOMINAL PAIN UPPER [None]
  - CROHN'S DISEASE [None]
  - DEHYDRATION [None]
  - DRUG INEFFECTIVE [None]
  - INCORRECT DOSE ADMINISTERED [None]
  - INFLAMMATION [None]
  - INTESTINAL OBSTRUCTION [None]
  - NAUSEA [None]
  - PAIN [None]
